FAERS Safety Report 25763808 (Version 1)
Quarter: 2025Q3

REPORT INFORMATION
  Report Type: Spontaneous
  Country: US (occurrence: US)
  Receive Date: 20250905
  Receipt Date: 20250905
  Transmission Date: 20251021
  Serious: No
  Sender: DOMPE FARMACEUTICI
  Company Number: US-FARMAPROD-202412-4170

PATIENT
  Sex: Female

DRUGS (16)
  1. OXERVATE [Suspect]
     Active Substance: CENEGERMIN-BKBJ
     Indication: Neurotrophic keratopathy
     Route: 047
     Dates: start: 20241113
  2. SIMVASTATIN [Concomitant]
     Active Substance: SIMVASTATIN
  3. PERIDEX [Concomitant]
     Active Substance: CHLORHEXIDINE GLUCONATE
  4. OCUVITE EYE HEALTH [Concomitant]
  5. UNSPECIFIED INGREDIENT [Concomitant]
     Active Substance: UNSPECIFIED INGREDIENT
  6. LATANOPROST [Concomitant]
     Active Substance: LATANOPROST
  7. FAMCICLOVIR [Concomitant]
     Active Substance: FAMCICLOVIR
  8. CARBIDOPA\LEVODOPA [Concomitant]
     Active Substance: CARBIDOPA\LEVODOPA
  9. ADVIL [Concomitant]
     Active Substance: IBUPROFEN
  10. SERTRALINE HYDROCHLORIDE [Concomitant]
     Active Substance: SERTRALINE HYDROCHLORIDE
  11. PROBIOTICS NOS [Concomitant]
     Active Substance: PROBIOTICS NOS
  12. ASPIRIN [Concomitant]
     Active Substance: ASPIRIN
  13. GABAPENTIN [Concomitant]
     Active Substance: GABAPENTIN
  14. TYLENOL 8HR [Concomitant]
     Active Substance: ACETAMINOPHEN
  15. TRAMADOL HCL [Concomitant]
     Active Substance: TRAMADOL HYDROCHLORIDE
  16. REFRESH TEARS [Concomitant]
     Active Substance: CARBOXYMETHYLCELLULOSE SODIUM

REACTIONS (3)
  - Eye pain [Unknown]
  - Vision blurred [Unknown]
  - Product dose omission issue [Unknown]
